FAERS Safety Report 8487379-9 (Version None)
Quarter: 2012Q3

REPORT INFORMATION
  Report Type: 
  Country: None (occurrence: None)
  Receive Date: 20120705
  Receipt Date: 20120622
  Transmission Date: 20120928
  Serious: Yes (Life-Threatening, Hospitalization, Other)
  Sender: FDA-Public Use
  Company Number: FR-ELI_LILLY_AND_COMPANY-FR201206007153

PATIENT
  Sex: Female

DRUGS (6)
  1. NOCTAMIDE [Concomitant]
     Dosage: 2 MG, QD
  2. MIRTAZAPINE [Concomitant]
     Dosage: 15 MG, UNK
  3. LEXOMIL [Concomitant]
     Dosage: UNK MG, UNK
  4. ABILIFY [Concomitant]
     Dosage: 10 MG, QD
  5. CYMBALTA [Suspect]
     Dosage: UNK
     Route: 048
     Dates: end: 20110723
  6. LAMICTAL [Concomitant]
     Dosage: UNK
     Route: 048
     Dates: end: 20110723

REACTIONS (16)
  - MYOCLONUS [None]
  - HYPERTHERMIA [None]
  - PSYCHOMOTOR RETARDATION [None]
  - RHABDOMYOLYSIS [None]
  - SOMNOLENCE [None]
  - HYPERREFLEXIA [None]
  - INTENTIONAL OVERDOSE [None]
  - HYPERHIDROSIS [None]
  - AGITATION [None]
  - HEPATOCELLULAR INJURY [None]
  - INCOHERENT [None]
  - SUICIDE ATTEMPT [None]
  - TACHYCARDIA [None]
  - MYDRIASIS [None]
  - PYRAMIDAL TRACT SYNDROME [None]
  - SEROTONIN SYNDROME [None]
